FAERS Safety Report 5532426-7 (Version None)
Quarter: 2007Q4

REPORT INFORMATION
  Report Type: 
  Country: None (occurrence: None)
  Receive Date: 20071203
  Receipt Date: 20071123
  Transmission Date: 20080405
  Serious: Yes (Hospitalization, Other)
  Sender: FDA-Public Use
  Company Number: AU-PFIZER INC-2007077642

PATIENT
  Sex: Male
  Weight: 66 kg

DRUGS (5)
  1. LIPITOR [Suspect]
     Indication: HYPERCHOLESTEROLAEMIA
     Route: 048
     Dates: start: 20030101, end: 20070910
  2. HYGROTON [Concomitant]
     Indication: HYPERCHOLESTEROLAEMIA
     Route: 048
     Dates: start: 20070101, end: 20070910
  3. COVERSYL [Concomitant]
     Indication: HYPERTENSION
     Route: 048
     Dates: start: 20050101, end: 20070910
  4. ASPIRIN [Concomitant]
  5. CARTIA XT [Concomitant]
     Route: 048

REACTIONS (7)
  - ABDOMINAL PAIN UPPER [None]
  - BLOOD AMYLASE INCREASED [None]
  - LIPASE INCREASED [None]
  - NAUSEA [None]
  - PANCREATIC DISORDER [None]
  - PANCREATIC DUCT DILATATION [None]
  - PANCREATITIS [None]
